FAERS Safety Report 14734437 (Version 1)
Quarter: 2018Q2

REPORT INFORMATION
  Report Type: Spontaneous
  Country: FR (occurrence: FR)
  Receive Date: 20180409
  Receipt Date: 20180409
  Transmission Date: 20180711
  Serious: Yes (Other)
  Sender: FDA-Public Use
  Company Number: FR-SA-2018SA096113

PATIENT
  Age: 61 Year
  Sex: Male
  Weight: 112 kg

DRUGS (6)
  1. 5-FU [Suspect]
     Active Substance: FLUOROURACIL
     Indication: COLORECTAL CANCER METASTATIC
     Route: 040
     Dates: start: 20161004
  2. IRINOTECAN [Suspect]
     Active Substance: IRINOTECAN
     Indication: COLORECTAL CANCER METASTATIC
     Dosage: LAST ADMINISTRATION ON 20/SEP/2016 DOSE OF 330 MG PRIOR TO EVENT
     Route: 065
     Dates: start: 20160527
  3. BEVACIZUMAB. [Suspect]
     Active Substance: BEVACIZUMAB
     Indication: COLORECTAL CANCER METASTATIC
     Dosage: LAST ADMINISTRATION ON 29/NOV/2016 DOSE OF 840 MG (11TH CYCLE) PRIOR TO EVENT
     Route: 065
     Dates: start: 20160624
  4. CAPECITABINE. [Suspect]
     Active Substance: CAPECITABINE
     Indication: COLORECTAL CANCER METASTATIC
     Dosage: LAST ADMINISTRATION ON 29/NOV/2016 DOSE OF 2600 MG (03RD CYCLE) PRIOR TO EVENT
     Route: 065
     Dates: start: 20161018
  5. 5-FU [Suspect]
     Active Substance: FLUOROURACIL
     Indication: COLORECTAL CANCER METASTATIC
     Dosage: LAST ADMINISTRATION ON 04/OCT/2016 DOSE OF 4800 MG (10TH CYCLE) PRIOR TO EVENT
     Route: 042
     Dates: start: 20160527
  6. OXALIPLATIN. [Suspect]
     Active Substance: OXALIPLATIN
     Indication: COLORECTAL CANCER METASTATIC
     Dosage: LAST ADMINISTRATION ON 20/SEP/2016 DOSE OF 170 MG (9TH CYCLE) PRIOR TO EVENT
     Route: 065
     Dates: start: 20160527

REACTIONS (2)
  - Ill-defined disorder [Unknown]
  - Hypertension [Recovered/Resolved]

NARRATIVE: CASE EVENT DATE: 20161129
